FAERS Safety Report 5117076-9 (Version None)
Quarter: 2006Q3

REPORT INFORMATION
  Report Type: 
  Country: None (occurrence: None)
  Receive Date: 20060925
  Receipt Date: 20060912
  Transmission Date: 20061208
  Serious: Yes (Other)
  Sender: FDA-Public Use
  Company Number: 2006103146

PATIENT
  Age: 59 Year
  Sex: Female

DRUGS (5)
  1. LYRICA [Suspect]
     Indication: NEURALGIA
     Dosage: 200 MG (3 IN 1 D), ORAL
     Route: 048
     Dates: start: 20060821, end: 20060824
  2. DIAZEPAM [Concomitant]
  3. RANITIDINE [Concomitant]
  4. PROCHLORPERAZINE MALEATE [Concomitant]
  5. QUININE BISULFATE (QUININE BISULFATE) [Concomitant]

REACTIONS (5)
  - CONFUSIONAL STATE [None]
  - DYSPHASIA [None]
  - GAIT DISTURBANCE [None]
  - MUSCLE SPASMS [None]
  - SOMNOLENCE [None]
